FAERS Safety Report 8192303-2 (Version None)
Quarter: 2012Q1

REPORT INFORMATION
  Report Type: 
  Country: None (occurrence: None)
  Receive Date: 20120307
  Receipt Date: 20081129
  Transmission Date: 20120608
  Serious: Yes (Other)
  Sender: FDA-Public Use
  Company Number: PHHY2008AU043895

PATIENT
  Sex: Female

DRUGS (1)
  1. ZOLEDRONOC ACID [Suspect]
     Dosage: 5 MG,
     Route: 042
     Dates: start: 20081129

REACTIONS (3)
  - DIZZINESS [None]
  - BLOOD PRESSURE DECREASED [None]
  - FEELING ABNORMAL [None]
